FAERS Safety Report 10067735 (Version 2)
Quarter: 2014Q2

REPORT INFORMATION
  Report Type: Spontaneous
  Country: CN (occurrence: CN)
  Receive Date: 20140409
  Receipt Date: 20140414
  Transmission Date: 20141212
  Serious: Yes (Other)
  Sender: FDA-Public Use
  Company Number: CN-SA-2014SA043850

PATIENT
  Age: 86 Year
  Sex: Male

DRUGS (9)
  1. CLOPIDOGREL BISULFATE [Suspect]
     Indication: PRODUCT USED FOR UNKNOWN INDICATION
     Route: 048
  2. IRBESARTAN [Interacting]
     Indication: PRODUCT USED FOR UNKNOWN INDICATION
     Route: 048
  3. HYDROCHLOROTHIAZIDE [Interacting]
     Indication: PRODUCT USED FOR UNKNOWN INDICATION
     Route: 048
  4. ASPIRIN [Interacting]
     Indication: PRODUCT USED FOR UNKNOWN INDICATION
     Route: 048
  5. ATORVASTATIN CALCIUM [Interacting]
     Indication: HYPERLIPIDAEMIA
     Route: 048
     Dates: end: 20120803
  6. TRIMETAZIDINE HYDROCHLORIDE [Interacting]
     Indication: PRODUCT USED FOR UNKNOWN INDICATION
     Route: 048
  7. METOPROLOL TARTRATE [Interacting]
     Indication: PRODUCT USED FOR UNKNOWN INDICATION
     Route: 048
  8. SPIRONOLACTONE [Interacting]
     Indication: PRODUCT USED FOR UNKNOWN INDICATION
     Route: 048
  9. BEZAFIBRATE [Interacting]
     Indication: HYPERLIPIDAEMIA
     Dosage: STRENGTH: 0.2 G
     Route: 048
     Dates: start: 20120803, end: 20120813

REACTIONS (6)
  - Renal injury [Recovered/Resolved]
  - Drug interaction [Unknown]
  - Blood urea increased [Recovered/Resolved]
  - Blood creatinine increased [Recovered/Resolved]
  - Renal impairment [Recovered/Resolved]
  - Blood uric acid increased [Recovered/Resolved]
